FAERS Safety Report 21316254 (Version 2)
Quarter: 2022Q4

REPORT INFORMATION
  Report Type: Spontaneous
  Country: US (occurrence: US)
  Receive Date: 20220910
  Receipt Date: 20221007
  Transmission Date: 20230112
  Serious: No
  Sender: FDA-Public Use
  Company Number: US-NOVARTISTESTPH-NVSC2022US204504

PATIENT
  Sex: Female

DRUGS (1)
  1. TAFINLAR [Suspect]
     Active Substance: DABRAFENIB MESYLATE
     Indication: Thyroid cancer
     Dosage: 150 MG, BID (EVERY 12 HOURS)
     Route: 048
     Dates: start: 20220824

REACTIONS (6)
  - Acne [Unknown]
  - Blood glucose increased [Unknown]
  - Headache [Unknown]
  - Abdominal pain upper [Unknown]
  - Pruritus [Unknown]
  - Diarrhoea [Unknown]
